FAERS Safety Report 18260391 (Version 1)
Quarter: 2020Q3

REPORT INFORMATION
  Report Type: Spontaneous
  Country: DE (occurrence: DE)
  Receive Date: 20200914
  Receipt Date: 20200914
  Transmission Date: 20201103
  Serious: Yes (Life-Threatening, Other)
  Sender: FDA-Public Use
  Company Number: DE-AUROBINDO-AUR-APL-2020-047198

PATIENT
  Age: 52 Year
  Sex: Female
  Weight: 63 kg

DRUGS (9)
  1. RISPERIDONE FILM?COATED TABLET [Suspect]
     Active Substance: RISPERIDONE
     Indication: MUTISM
     Dosage: 2 MILLIGRAM
     Route: 048
     Dates: start: 20200717, end: 20200720
  2. CHLORPROTHIXEN [Suspect]
     Active Substance: CHLORPROTHIXENE HYDROCHLORIDE
     Indication: PSYCHOTIC DISORDER
     Dosage: 90 MILLIGRAM
     Route: 048
     Dates: start: 20200716, end: 20200720
  3. CHLORPROTHIXEN [Suspect]
     Active Substance: CHLORPROTHIXENE HYDROCHLORIDE
     Indication: MUTISM
  4. QUETIAPIN [Concomitant]
     Active Substance: QUETIAPINE
     Indication: DEPRESSIVE DELUSION
     Dosage: UNK
     Route: 065
     Dates: start: 2010, end: 202008
  5. RISPERIDONE FILM?COATED TABLET [Suspect]
     Active Substance: RISPERIDONE
     Indication: PSYCHOTIC DISORDER
  6. RISPERIDONE FILM?COATED TABLET [Suspect]
     Active Substance: RISPERIDONE
     Indication: CATATONIA
  7. ESCITALOPRAM [Concomitant]
     Active Substance: ESCITALOPRAM OXALATE
     Indication: PRODUCT USED FOR UNKNOWN INDICATION
     Dosage: UNK
     Route: 065
     Dates: start: 20200626
  8. CHLORPROTHIXEN [Suspect]
     Active Substance: CHLORPROTHIXENE HYDROCHLORIDE
     Indication: CATATONIA
  9. PROTHIPENDYL [Concomitant]
     Active Substance: PROTHIPENDYL
     Indication: PRODUCT USED FOR UNKNOWN INDICATION
     Dosage: UNK
     Route: 065
     Dates: start: 20200703

REACTIONS (3)
  - Rhabdomyolysis [Recovered/Resolved]
  - Neuropathy peripheral [Not Recovered/Not Resolved]
  - Neuroleptic malignant syndrome [Recovered/Resolved]

NARRATIVE: CASE EVENT DATE: 20200720
